FAERS Safety Report 4326339-6 (Version None)
Quarter: 2004Q1

REPORT INFORMATION
  Report Type: 
  Country: None (occurrence: None)
  Receive Date: 20040329
  Receipt Date: 20040329
  Transmission Date: 20041129
  Serious: Yes (Life-Threatening, Disabling)
  Sender: FDA-Public Use
  Company Number: None

PATIENT
  Sex: Female
  Weight: 47.6277 kg

DRUGS (1)
  1. ZOLOFT [Suspect]
     Dosage: 25 MG 1X DAY ORAL
     Route: 048
     Dates: start: 20030415, end: 20030601

REACTIONS (14)
  - ANXIETY [None]
  - BURNING SENSATION [None]
  - DEPERSONALISATION [None]
  - DEPRESSION [None]
  - DIARRHOEA [None]
  - DIZZINESS [None]
  - FOOD AVERSION [None]
  - NEUROPATHY PERIPHERAL [None]
  - PAIN [None]
  - PANIC ATTACK [None]
  - SEROTONIN SYNDROME [None]
  - SUICIDAL IDEATION [None]
  - TREMOR [None]
  - WEIGHT DECREASED [None]
